FAERS Safety Report 7001707-2 (Version None)
Quarter: 2010Q3

REPORT INFORMATION
  Report Type: 
  Country: None (occurrence: None)
  Receive Date: 20100920
  Receipt Date: 20100910
  Transmission Date: 20110219
  Serious: Yes (Other)
  Sender: FDA-Public Use
  Company Number: DE-PFIZER INC-2010093114

PATIENT
  Age: 27 Year
  Sex: Female
  Weight: 88 kg

DRUGS (1)
  1. DEPO-CLINOVIR [Suspect]
     Indication: CONTRACEPTION
     Dosage: 1 DF, EVERY 3 MONTHS
     Route: 058
     Dates: start: 20010101, end: 20090101

REACTIONS (4)
  - HEAD TITUBATION [None]
  - INCORRECT ROUTE OF DRUG ADMINISTRATION [None]
  - INTENTION TREMOR [None]
  - TREMOR [None]
